FAERS Safety Report 9958850 (Version 5)
Quarter: 2014Q2

REPORT INFORMATION
  Report Type: Report from Study
  Country: TR (occurrence: TR)
  Receive Date: 20140305
  Receipt Date: 20140523
  Transmission Date: 20141212
  Serious: Yes (Hospitalization)
  Sender: FDA-Public Use
  Company Number: TR-ROCHE-1355482

PATIENT
  Age: 74 Year
  Sex: Female
  Weight: 60 kg

DRUGS (6)
  1. OBINUTUZUMAB [Suspect]
     Indication: CHRONIC LYMPHOCYTIC LEUKAEMIA
     Dosage: LAST DOSE 26/FEB/2014.
     Route: 042
     Dates: start: 20140220
  2. OBINUTUZUMAB [Suspect]
     Dosage: LAST DOSE PRIOR TO SAE: 26/FEB/2014.
     Route: 042
     Dates: start: 20140311
  3. BENDAMUSTINE [Suspect]
     Indication: CHRONIC LYMPHOCYTIC LEUKAEMIA
     Dosage: MOST RECENT DOSE 21/FEB/2014.
     Route: 042
     Dates: start: 20140220
  4. LIPOFEN [Concomitant]
     Indication: HYPERLIPIDAEMIA
     Route: 048
     Dates: start: 19990101
  5. KARVEA [Concomitant]
     Indication: HYPERTENSION
     Route: 048
     Dates: start: 19990101
  6. OMNIPAQUE [Concomitant]
     Indication: HYPERTENSION
     Dosage: SINGLE DOSE
     Route: 042
     Dates: start: 20140219, end: 20140219

REACTIONS (2)
  - Blood creatinine increased [Recovered/Resolved]
  - Urinary tract infection [Recovered/Resolved]
